FAERS Safety Report 7926450 (Version 3)
Quarter: 2013Q3

REPORT INFORMATION
  Report Type: Spontaneous
  Country: US (occurrence: US)
  Receive Date: 20110502
  Receipt Date: 20130725
  Transmission Date: 20140515
  Serious: No
  Sender: FDA-Public Use
  Company Number: US-ASTRAZENECA-2010SE56435

PATIENT
  Age: 756 Month
  Sex: Female
  Weight: 56.7 kg

DRUGS (1)
  1. NEXIUM [Suspect]
     Route: 048
     Dates: start: 2010, end: 201306

REACTIONS (16)
  - Ulcer [Unknown]
  - Dyspepsia [Unknown]
  - Dyspepsia [Unknown]
  - Pain [Unknown]
  - Chest pain [Unknown]
  - Stress [Unknown]
  - Eating disorder [Unknown]
  - Regurgitation [Unknown]
  - Chronic obstructive pulmonary disease [Unknown]
  - Dyspnoea [Unknown]
  - Diabetes mellitus [Unknown]
  - Disease progression [Unknown]
  - Mood swings [Unknown]
  - Confusional state [Unknown]
  - Intentional drug misuse [Unknown]
  - Drug effect decreased [Unknown]
